FAERS Safety Report 6639775-X (Version None)
Quarter: 2010Q1

REPORT INFORMATION
  Report Type: 
  Country: None (occurrence: None)
  Receive Date: 20100318
  Receipt Date: 20100315
  Transmission Date: 20100710
  Serious: Yes (Death)
  Sender: FDA-Public Use
  Company Number: PHHY2010MX15587

PATIENT
  Age: 74 Year
  Sex: Female

DRUGS (1)
  1. DIOVAN [Suspect]
     Dosage: 1 TABLET (80 MG) PER DAY
     Route: 048

REACTIONS (2)
  - INJURY [None]
  - ROAD TRAFFIC ACCIDENT [None]
